FAERS Safety Report 6192943-6 (Version None)
Quarter: 2009Q2

REPORT INFORMATION
  Report Type: 
  Country: None (occurrence: None)
  Receive Date: 20090518
  Receipt Date: 20090505
  Transmission Date: 20091009
  Serious: Yes (Hospitalization)
  Sender: FDA-Public Use
  Company Number: US-BIOGENIDEC-2006BI000262

PATIENT
  Age: 39 Year
  Sex: Female

DRUGS (3)
  1. AVONEX [Suspect]
     Indication: MULTIPLE SCLEROSIS
     Route: 030
     Dates: start: 19971201
  2. AVONEX [Suspect]
     Route: 030
     Dates: start: 20010801, end: 20030801
  3. AVONEX [Suspect]
     Route: 030
     Dates: start: 20030801, end: 20051001

REACTIONS (4)
  - ABASIA [None]
  - INTERVERTEBRAL DISC PROTRUSION [None]
  - POSTOPERATIVE ADHESION [None]
  - STAPHYLOCOCCAL INFECTION [None]
